FAERS Safety Report 8615628 (Version 2)
Quarter: 2012Q4

REPORT INFORMATION
  Report Type: 
  Country: US (occurrence: US)
  Receive Date: 20120614
  Receipt Date: 20120927
  Transmission Date: 20130627
  Serious: No
  Sender: FDA-Public Use
  Company Number: US-AMGEN-USASP2012026361

PATIENT
  Age: 83 Year
  Sex: Male
  Weight: 82.54 kg

DRUGS (2)
  1. XGEVA [Suspect]
     Indication: PROSTATE CANCER METASTATIC
     Dosage: 1.7 ml, q4wk
     Dates: start: 20111116, end: 20120326
  2. ELIGARD [Concomitant]
     Indication: PROSTATE CANCER
     Dosage: 45 mg, q6mo

REACTIONS (2)
  - Herpes zoster [Unknown]
  - Rash [Recovering/Resolving]
